FAERS Safety Report 10551316 (Version 1)
Quarter: 2014Q4

REPORT INFORMATION
  Report Type: Spontaneous
  Country: US (occurrence: None)
  Receive Date: 20141028
  Receipt Date: 20141028
  Transmission Date: 20150529
  Serious: Yes (Hospitalization)
  Sender: FDA-Public Use
  Company Number: None

PATIENT
  Age: 63 Year
  Sex: Male
  Weight: 72.58 kg

DRUGS (11)
  1. AMLODIPINE BESYLATE. [Suspect]
     Active Substance: AMLODIPINE BESYLATE
     Indication: BLOOD PRESSURE
     Dosage: 2 TABLETS (1 TAB AM/1 TAB PM) BY MOUTH
     Dates: start: 20130715, end: 20141016
  2. CEPHALEXIN. [Concomitant]
     Active Substance: CEPHALEXIN
  3. AZATHIOPRINE. [Concomitant]
     Active Substance: AZATHIOPRINE
  4. METOPROLOL [Concomitant]
     Active Substance: METOPROLOL
  5. TARTRATE [Concomitant]
  6. RAMIPRIL. [Concomitant]
     Active Substance: RAMIPRIL
  7. VITAMIN B12 [Concomitant]
     Active Substance: CYANOCOBALAMIN
  8. VITAMIN D3 [Concomitant]
     Active Substance: CHOLECALCIFEROL
  9. PREDNISONE. [Concomitant]
     Active Substance: PREDNISONE
  10. HYDROCODONE [Concomitant]
     Active Substance: HYDROCODONE
  11. CO-Q10 [Concomitant]

REACTIONS (16)
  - Dyspnoea [None]
  - Pain in extremity [None]
  - Dizziness [None]
  - Infection [None]
  - Renal failure [None]
  - Headache [None]
  - Asthenia [None]
  - Blood pressure increased [None]
  - Pruritus [None]
  - Cellulitis [None]
  - Fatigue [None]
  - Decreased appetite [None]
  - Peripheral swelling [None]
  - Nausea [None]
  - Renal impairment [None]
  - Rash [None]

NARRATIVE: CASE EVENT DATE: 20141001
